FAERS Safety Report 8838878 (Version 1)
Quarter: 2012Q4

REPORT INFORMATION
  Report Type: Spontaneous
  Country: US (occurrence: None)
  Receive Date: 20121011
  Receipt Date: 20121011
  Transmission Date: 20130627
  Serious: Yes (Hospitalization)
  Sender: FDA-Public Use
  Company Number: None

PATIENT
  Age: 11 Year
  Sex: Female
  Weight: 41.5 kg

DRUGS (1)
  1. ONCASPAR [Suspect]
     Dosage: 3250 units ONCE  IV Drip
     Dates: start: 20121002, end: 20121002

REACTIONS (6)
  - Tremor [None]
  - Chills [None]
  - Vomiting [None]
  - Hyperhidrosis [None]
  - Erythema [None]
  - Loss of consciousness [None]
